FAERS Safety Report 9312377 (Version 2)
Quarter: 2013Q3

REPORT INFORMATION
  Report Type: Report from Study
  Country: US (occurrence: US)
  Receive Date: 20130528
  Receipt Date: 20130718
  Transmission Date: 20140515
  Serious: Yes (Hospitalization)
  Sender: FDA-Public Use
  Company Number: US-ABBOTT-13P-163-1094411-00

PATIENT
  Age: 60 Year
  Sex: Male

DRUGS (3)
  1. ANDROGEL 1% [Suspect]
     Indication: BLOOD TESTOSTERONE DECREASED
     Dosage: 6 PUMPS DAILY
     Route: 061
     Dates: start: 20120815, end: 2013
  2. ANDROGEL 1% [Suspect]
     Indication: HYPOGONADISM
     Dates: start: 20130613
  3. PROSCAR [Concomitant]
     Indication: BENIGN PROSTATIC HYPERPLASIA
     Route: 048
     Dates: start: 201211

REACTIONS (4)
  - Gas poisoning [Unknown]
  - Nausea [Unknown]
  - Headache [Unknown]
  - Hypersensitivity [Unknown]
